FAERS Safety Report 6756213-7 (Version None)
Quarter: 2010Q2

REPORT INFORMATION
  Report Type: 
  Country: None (occurrence: None)
  Receive Date: 20100604
  Receipt Date: 20100602
  Transmission Date: 20101027
  Serious: Yes (Death, Hospitalization, Other)
  Sender: FDA-Public Use
  Company Number: PHHO2010US07531

PATIENT
  Age: 56 Year
  Sex: Male
  Weight: 106 kg

DRUGS (8)
  1. STI571/CGP57148B T35717+CAPS [Suspect]
     Indication: ACUTE LYMPHOCYTIC LEUKAEMIA
     Dosage: 400 MG, QD
     Route: 048
     Dates: start: 20081122, end: 20100503
  2. ALLOPURINOL [Concomitant]
  3. IRRADIATION [Concomitant]
  4. ETOPOSIDE [Concomitant]
  5. TACROLIMUS [Concomitant]
  6. BLOOD TRANSFUSION, AUXILIARY PRODUCTS [Concomitant]
  7. METHOTREXATE [Concomitant]
  8. NEUPOGEN [Concomitant]

REACTIONS (14)
  - ACUTE RESPIRATORY DISTRESS SYNDROME [None]
  - ACUTE RESPIRATORY FAILURE [None]
  - BODY TEMPERATURE INCREASED [None]
  - COUGH [None]
  - DEEP VEIN THROMBOSIS [None]
  - DYSPNOEA [None]
  - ENDOTRACHEAL INTUBATION [None]
  - LUNG INFILTRATION [None]
  - MECHANICAL VENTILATION [None]
  - PNEUMONIA [None]
  - PNEUMONITIS [None]
  - PULMONARY CONGESTION [None]
  - PULMONARY HYPERTENSION [None]
  - RENAL FAILURE ACUTE [None]
